FAERS Safety Report 17285459 (Version 1)
Quarter: 2020Q1

REPORT INFORMATION
  Report Type: Report from Study
  Country: US (occurrence: US)
  Receive Date: 20200117
  Receipt Date: 20200117
  Transmission Date: 20200409
  Serious: No
  Sender: FDA-Public Use
  Company Number: NVSC2020US011764

PATIENT
  Age: 55 Year
  Sex: Female

DRUGS (1)
  1. GILENYA [Suspect]
     Active Substance: FINGOLIMOD HYDROCHLORIDE
     Indication: RELAPSING-REMITTING MULTIPLE SCLEROSIS
     Dosage: 0.5 MG, QD (5 DAYS/WEEK)
     Route: 048
     Dates: start: 20190701

REACTIONS (4)
  - Inappropriate schedule of product administration [Unknown]
  - White blood cell count decreased [Unknown]
  - Product prescribing error [Unknown]
  - Monocyte count increased [Unknown]

NARRATIVE: CASE EVENT DATE: 20200115
